FAERS Safety Report 8174970-2 (Version None)
Quarter: 2012Q1

REPORT INFORMATION
  Report Type: 
  Country: None (occurrence: None)
  Receive Date: 20120229
  Receipt Date: 20120227
  Transmission Date: 20120608
  Serious: Yes (Death)
  Sender: FDA-Public Use
  Company Number: US-ELI_LILLY_AND_COMPANY-US201201000842

PATIENT
  Sex: Male
  Weight: 78.5 kg

DRUGS (12)
  1. DEPO-TESTOSTERONE [Concomitant]
     Dosage: 125 MG, Q2WEEKS
     Route: 030
  2. HYDROCORTISONE [Concomitant]
     Dosage: 10 MG, UNK
  3. CLONAZEPAM [Concomitant]
     Dosage: 1 MG, QD
  4. HUMATROPE [Suspect]
     Indication: HYPOPITUITARISM
     Dosage: 0.8 MG, QD
     Route: 058
     Dates: start: 20020815, end: 20120102
  5. METOPROLOL SUCCINATE [Concomitant]
     Dosage: 50 MG, BID
  6. POTASSIUM CHLORIDE [Concomitant]
     Dosage: 750 MG, QD
  7. ASPIRIN [Concomitant]
     Dosage: 325 DF, QD
  8. FLUDROCORTISONE ACETATE [Concomitant]
     Dosage: 0.1 MG, QD
  9. HYDROCORTISONE [Concomitant]
     Dosage: 20 MG, QD
  10. CALCITRIOL [Concomitant]
     Dosage: 0.5 MG, QD
  11. LEVOXYL [Concomitant]
     Dosage: 100 MG, QD
  12. BENAZEPRIL HYDROCHLORIDE [Concomitant]
     Dosage: 40 MG, QD

REACTIONS (1)
  - DEATH [None]
